FAERS Safety Report 5785740-4 (Version None)
Quarter: 2008Q2

REPORT INFORMATION
  Report Type: 
  Country: None (occurrence: None)
  Receive Date: 20080624
  Receipt Date: 20070711
  Transmission Date: 20081010
  Serious: No
  Sender: FDA-Public Use
  Company Number: US-ASTRAZENECA-2007UW14929

PATIENT
  Age: 10 Year
  Sex: Male
  Weight: 35.4 kg

DRUGS (3)
  1. PULMICORT FLEXHALER [Suspect]
     Indication: WHEEZING
     Route: 055
     Dates: start: 20070601
  2. ALBUTEROL [Concomitant]
     Route: 055
  3. PREDNISONE TAB [Concomitant]

REACTIONS (2)
  - PHARYNGOLARYNGEAL PAIN [None]
  - TONGUE DISCOLOURATION [None]
